FAERS Safety Report 10423035 (Version 1)
Quarter: 2014Q3

REPORT INFORMATION
  Report Type: Spontaneous
  Country: US (occurrence: None)
  Receive Date: 20140722
  Receipt Date: 20140722
  Transmission Date: 20150326
  Serious: No
  Sender: FDA-Public Use
  Company Number: 163-10004-14053914

PATIENT
  Age: 52 Year
  Sex: Female

DRUGS (9)
  1. NABUMETONE (NABUMETONE) (UNKNOWN) [Concomitant]
  2. HYDROXYCHLOROQUINE (HYDROXYCHLOROQUINE) (UNKNOWN) (HYDROXYCHLOROQUINE) [Concomitant]
     Active Substance: HYDROXYCHLOROQUINE
  3. ROPINIROLE (ROPINIROLE) (UNKNOWN) [Concomitant]
  4. DIOVAN (VALSARTAN) (UNKNOWN) [Concomitant]
  5. GABAPENTIN (GABAPENTIN) (UNKNOWN) (GABAPENTIN) [Concomitant]
     Active Substance: GABAPENTIN
  6. OTEZLA [Suspect]
     Active Substance: APREMILAST
     Indication: PSORIATIC ARTHROPATHY
     Route: 048
     Dates: start: 20140510
  7. HYDROCODONE (HYDROCODONE) (UNKNOWN) [Concomitant]
  8. TIZANIDINE (TIZANIDINE) (UNKNOWN) [Concomitant]
  9. VITAMIN D3 (COLECALCIFEROL) (UNKNOWN) [Concomitant]

REACTIONS (2)
  - Nausea [None]
  - Headache [None]

NARRATIVE: CASE EVENT DATE: 20140510
